FAERS Safety Report 5274251-0 (Version None)
Quarter: 2007Q1

REPORT INFORMATION
  Report Type: 
  Country: None (occurrence: None)
  Receive Date: 20070323
  Receipt Date: 20070312
  Transmission Date: 20070707
  Serious: Yes (Life-Threatening, Hospitalization)
  Sender: FDA-Public Use
  Company Number: FR-JNJFOC-20070102222

PATIENT
  Age: 58 Year
  Sex: Female

DRUGS (6)
  1. REMICADE [Suspect]
     Indication: RHEUMATOID ARTHRITIS
     Route: 042
  2. NOVATREX 25 [Concomitant]
  3. SPECIAFOLDINE [Concomitant]
  4. LANSOPRAZOLE [Concomitant]
  5. DIANTALVIC [Concomitant]
  6. FOSAMAX [Concomitant]

REACTIONS (1)
  - GASTRIC CANCER [None]
